FAERS Safety Report 6169595-4 (Version None)
Quarter: 2009Q2

REPORT INFORMATION
  Report Type: 
  Country: None (occurrence: None)
  Receive Date: 20090428
  Receipt Date: 20090423
  Transmission Date: 20091009
  Serious: Yes (Death, Life-Threatening, Other)
  Sender: FDA-Public Use
  Company Number: JP-BRISTOL-MYERS SQUIBB COMPANY-14554075

PATIENT
  Age: 23 Year
  Sex: Male

DRUGS (13)
  1. FUNGIZONE [Suspect]
     Indication: GRANULOMA
     Route: 065
     Dates: start: 20000801
  2. INTERFERON GAMMA [Concomitant]
  3. CEFOTIAM [Concomitant]
  4. SULBACTAM [Concomitant]
  5. CEFOPERAZONE SODIUM [Concomitant]
  6. PIPERACILLIN [Concomitant]
  7. IMIPENEM [Concomitant]
  8. CILASTATIN [Concomitant]
  9. PANIPENEM [Concomitant]
  10. CEFTAZIDIME [Concomitant]
  11. ITRACONAZOLE [Concomitant]
  12. MICAFUNGIN SODIUM [Concomitant]
  13. MICONAZOLE [Concomitant]

REACTIONS (1)
  - RENAL FAILURE [None]
